FAERS Safety Report 14195873 (Version 1)
Quarter: 2017Q4

REPORT INFORMATION
  Report Type: Spontaneous
  Country: US (occurrence: US)
  Receive Date: 20171116
  Receipt Date: 20171116
  Transmission Date: 20180321
  Serious: No
  Sender: FDA-Public Use
  Company Number: US-BAUSCH-BL-2016-031206

PATIENT
  Age: 67 Year
  Sex: Female

DRUGS (1)
  1. XENAZINE [Suspect]
     Active Substance: TETRABENAZINE
     Indication: DYSKINESIA
     Route: 048
     Dates: start: 200812

REACTIONS (8)
  - Dysphagia [Recovered/Resolved]
  - Disease recurrence [Recovered/Resolved]
  - Dyspnoea [Unknown]
  - Movement disorder [Unknown]
  - Neck pain [Unknown]
  - Off label use [Unknown]
  - Drug dose omission [Unknown]
  - Eating disorder [Recovered/Resolved]

NARRATIVE: CASE EVENT DATE: 201611
